FAERS Safety Report 7307411-5 (Version None)
Quarter: 2011Q1

REPORT INFORMATION
  Report Type: 
  Country: None (occurrence: None)
  Receive Date: 20110210
  Receipt Date: 20110201
  Transmission Date: 20110831
  Serious: Yes (Death)
  Sender: FDA-Public Use
  Company Number: 818260

PATIENT
  Age: 59 Year
  Sex: Female

DRUGS (4)
  1. CARMUSTINE [Suspect]
     Dosage: 570 MG, INTRAVENOUS (NOT OTHERWISE SPECIFIED)
     Route: 042
  2. (MELPHALAN) [Suspect]
     Dosage: 265 MG, INTRAVENOUS (NOT OTHERWISE SPECIFIED)
     Route: 042
  3. CYTARABINE [Suspect]
     Dosage: 190 MG BID, INTRAVENOUS (NOT OTHERWISE SPECIFIED)
     Route: 042
  4. ETOPOSIDE [Suspect]
     Dosage: 190 MG BID, INTRAVENOUS (NOT OTHERWSE SPECIFIED)
     Route: 042

REACTIONS (10)
  - RENAL FAILURE [None]
  - VENTRICULAR TACHYCARDIA [None]
  - BRADYCARDIA [None]
  - CARDIAC ARREST [None]
  - SPLENOMEGALY [None]
  - LYMPHADENOPATHY [None]
  - PULMONARY OEDEMA [None]
  - THROMBOSIS IN DEVICE [None]
  - PNEUMOTHORAX [None]
  - PNEUMONIA [None]
